FAERS Safety Report 21503028 (Version 1)
Quarter: 2022Q4

REPORT INFORMATION
  Report Type: Spontaneous
  Country: US (occurrence: None)
  Receive Date: 20221024
  Receipt Date: 20221024
  Transmission Date: 20230113
  Serious: Yes (Other)
  Sender: FDA-Public Use
  Company Number: None

PATIENT
  Age: 27 Year
  Sex: Female
  Weight: 44.55 kg

DRUGS (1)
  1. BUPRENORPHINE [Suspect]
     Active Substance: BUPRENORPHINE
     Indication: Drug use disorder
     Dosage: OTHER QUANTITY : 56 TABLET(S);?FREQUENCY : TWICE A DAY;?
     Route: 060
     Dates: start: 20210701

REACTIONS (6)
  - Tooth disorder [None]
  - Tooth loss [None]
  - Gingival disorder [None]
  - Dental caries [None]
  - Toothache [None]
  - Tooth fracture [None]

NARRATIVE: CASE EVENT DATE: 20210701
